FAERS Safety Report 11390103 (Version 1)
Quarter: 2015Q3

REPORT INFORMATION
  Report Type: Spontaneous
  Country: US (occurrence: US)
  Receive Date: 20150818
  Receipt Date: 20150818
  Transmission Date: 20151125
  Serious: No
  Sender: FDA-Public Use
  Company Number: PHEH2015US015427

PATIENT
  Sex: Female

DRUGS (2)
  1. GILENYA [Suspect]
     Active Substance: FINGOLIMOD HYDROCHLORIDE
     Indication: MULTIPLE SCLEROSIS
     Dosage: 0.5 MG, UNK
     Route: 065
  2. GILENYA [Suspect]
     Active Substance: FINGOLIMOD HYDROCHLORIDE
     Dosage: 0.5 MG, QOD
     Route: 065

REACTIONS (9)
  - Feeling abnormal [Unknown]
  - Prescribed underdose [Unknown]
  - Headache [Unknown]
  - Hepatic enzyme increased [Unknown]
  - Abnormal behaviour [Unknown]
  - Off label use [Unknown]
  - Back pain [Unknown]
  - Irritability [Unknown]
  - Blood pressure increased [Unknown]
